FAERS Safety Report 23876730 (Version 1)
Quarter: 2024Q2

REPORT INFORMATION
  Report Type: Spontaneous
  Country: GB (occurrence: GB)
  Receive Date: 20240521
  Receipt Date: 20240521
  Transmission Date: 20240716
  Serious: Yes (Other)
  Sender: FDA-Public Use
  Company Number: None

PATIENT
  Age: 49 Year
  Sex: Female

DRUGS (18)
  1. OMEPRAZOLE [Suspect]
     Active Substance: DONEPEZIL HYDROCHLORIDE\OMEPRAZOLE\OMEPRAZOLE MAGNESIUM
  2. BALNEUM PLUS CREAM [Concomitant]
     Dosage: 2 SEPARATED DOSES
  3. UTROGESTAN [Concomitant]
     Active Substance: PROGESTERONE
     Dosage: NIGHT
  4. INDAPAMIDE [Concomitant]
     Active Substance: INDAPAMIDE
     Dosage: MORNING
  5. TESTOSTERONE [Concomitant]
     Active Substance: TESTOSTERONE
  6. ACYCLOVIR [Concomitant]
     Active Substance: ACYCLOVIR
     Dosage: 5 SEPARATED DOSES
  7. NAPROXEN [Concomitant]
     Active Substance: NAPROXEN
     Dosage: REGULARLY 2 SEPARATED DOSES
  8. ACETAMINOPHEN [Concomitant]
     Active Substance: ACETAMINOPHEN
     Dosage: EVERY 4 - 6 HOURS UP TO FOUR TIMES A DAY
  9. ESTRADIOL [Concomitant]
     Active Substance: ESTRADIOL
     Dosage: MORNING AND NIGHT THEN 1 PUMP PRN OD IF NEEDED 2 SEPARATED DOSES
  10. DICLOFENAC DIETHYLAMINE [Concomitant]
     Active Substance: DICLOFENAC DIETHYLAMINE
     Dosage: PRN RARELY AS USES NAPROXEN 3 SEPARATED DOSES
  11. OMEPRAZOLE [Concomitant]
     Active Substance: DONEPEZIL HYDROCHLORIDE\OMEPRAZOLE\OMEPRAZOLE MAGNESIUM
  12. TRAMADOL [Concomitant]
     Active Substance: TRAMADOL\TRAMADOL HYDROCHLORIDE
     Dosage: ON REGULARLY THEN 50-100MG OD PRN 2 SEPARATED DOSES
  13. CHOLECALCIFEROL [Concomitant]
     Active Substance: CHOLECALCIFEROL
  14. CROMOLYN SODIUM [Concomitant]
     Active Substance: CROMOLYN SODIUM
     Dosage: 3 SEPARATED DOSES
  15. CHLORPHENIRAMINE MALEATE [Concomitant]
     Active Substance: CHLORPHENIRAMINE MALEATE
     Dosage: ON PRN
  16. FEXOFENADINE [Concomitant]
     Active Substance: FEXOFENADINE HYDROCHLORIDE
  17. SENNA [Concomitant]
     Active Substance: SENNA LEAF\SENNOSIDES\SENNOSIDES A AND B
     Dosage: NIGHT
  18. TESTOSTERONE [Concomitant]
     Active Substance: TESTOSTERONE

REACTIONS (1)
  - Femoral neck fracture [Recovered/Resolved with Sequelae]
